FAERS Safety Report 14183845 (Version 3)
Quarter: 2017Q4

REPORT INFORMATION
  Report Type: Spontaneous
  Country: IT (occurrence: IT)
  Receive Date: 20171113
  Receipt Date: 20171212
  Transmission Date: 20180321
  Serious: Yes (Other)
  Sender: FDA-Public Use
  Company Number: IT-TEVA-824781ACC

PATIENT
  Age: 59 Year
  Sex: Male

DRUGS (5)
  1. TACROLIMUS. [Suspect]
     Active Substance: TACROLIMUS
     Indication: RENAL TRANSPLANT
  2. MYCOPHENOLATE MOFETIL. [Interacting]
     Active Substance: MYCOPHENOLATE MOFETIL
     Indication: RENAL TRANSPLANT
  3. RIBAVIRIN. [Interacting]
     Active Substance: RIBAVIRIN
     Indication: HEPATITIS C
  4. PREDNISONE. [Interacting]
     Active Substance: PREDNISONE
     Indication: RENAL TRANSPLANT
  5. RITONAVIR. [Interacting]
     Active Substance: RITONAVIR
     Indication: HEPATITIS C

REACTIONS (10)
  - Fatigue [Unknown]
  - Palpitations [Unknown]
  - Drug interaction [Unknown]
  - Renal impairment [Unknown]
  - Insomnia [Unknown]
  - Immunosuppressant drug level increased [Unknown]
  - Hepatitis C RNA increased [Unknown]
  - Portal hypertension [Unknown]
  - Anxiety [Unknown]
  - Hepatic cirrhosis [Unknown]
